FAERS Safety Report 13821075 (Version 2)
Quarter: 2017Q3

REPORT INFORMATION
  Report Type: Report from Study
  Country: US (occurrence: US)
  Receive Date: 20170801
  Receipt Date: 20170905
  Transmission Date: 20171127
  Serious: Yes (Death, Hospitalization)
  Sender: FDA-Public Use
  Company Number: US-EXELA PHARMA SCIENCES, LLC-2017EXL00005

PATIENT
  Age: 57 Year
  Sex: Male
  Weight: 92.4 kg

DRUGS (9)
  1. GANCICLOVIR. [Suspect]
     Active Substance: GANCICLOVIR
     Dosage: 100 MG, 1X/DAY
     Route: 042
     Dates: start: 20170502, end: 20170613
  2. GANCICLOVIR. [Suspect]
     Active Substance: GANCICLOVIR
     Dosage: 200 MG, 1X/DAY
     Route: 042
     Dates: start: 20170502, end: 20170613
  3. CICLOSPORIN [Suspect]
     Active Substance: CYCLOSPORINE
     Dosage: UNK, CONTINUOUS
     Route: 042
     Dates: start: 201701
  4. PREDNISONE. [Suspect]
     Active Substance: PREDNISONE
     Indication: GRAFT VERSUS HOST DISEASE
     Dosage: 80 MG, 1X/DAY TAPER
     Route: 048
     Dates: start: 20170424
  5. CICLOSPORIN [Suspect]
     Active Substance: CYCLOSPORINE
     Dosage: UNK
     Route: 048
     Dates: start: 201701
  6. SIROLIMUS. [Suspect]
     Active Substance: SIROLIMUS
     Dosage: 1 MG, 1X/DAY
     Route: 048
     Dates: start: 20170523, end: 20170617
  7. GANCICLOVIR. [Suspect]
     Active Substance: GANCICLOVIR
     Dosage: 200 MG, 2X/DAY
     Route: 042
     Dates: start: 20170502, end: 20170613
  8. METHYLPREDNISOLONE. [Suspect]
     Active Substance: METHYLPREDNISOLONE
     Indication: GRAFT VERSUS HOST DISEASE
     Dosage: 80 MG, ONCE
     Route: 042
     Dates: start: 20170423, end: 20170423
  9. INCB018424 [Suspect]
     Active Substance: RUXOLITINIB
     Indication: GRAFT VERSUS HOST DISEASE
     Dosage: 5 MG, 2X/DAY
     Route: 048
     Dates: start: 20170509, end: 20170523

REACTIONS (4)
  - Graft versus host disease [Fatal]
  - Candida infection [Fatal]
  - Bacterial infection [Fatal]
  - Neutropenia [Fatal]

NARRATIVE: CASE EVENT DATE: 2017
